FAERS Safety Report 5482467-3 (Version None)
Quarter: 2007Q4

REPORT INFORMATION
  Report Type: 
  Country: None (occurrence: None)
  Receive Date: 20071011
  Receipt Date: 20071008
  Transmission Date: 20080405
  Serious: Yes (Other)
  Sender: FDA-Public Use
  Company Number: US-ASTRAZENECA-2007UW23357

PATIENT
  Age: 69 Year
  Sex: Female
  Weight: 64.9 kg

DRUGS (2)
  1. SYMBICORT [Suspect]
     Indication: RESPIRATORY TRACT IRRITATION
     Dosage: 160/4.5 UG 2 PUFFS BID
     Route: 055
     Dates: start: 20070825
  2. ARIMIDEX [Concomitant]
     Route: 048

REACTIONS (3)
  - EYE DISORDER [None]
  - THROMBOSIS [None]
  - VISION BLURRED [None]
